FAERS Safety Report 6066342-1 (Version None)
Quarter: 2009Q1

REPORT INFORMATION
  Report Type: 
  Country: None (occurrence: None)
  Receive Date: 20090203
  Receipt Date: 20090121
  Transmission Date: 20090719
  Serious: Yes (Other)
  Sender: FDA-Public Use
  Company Number: KV200801479

PATIENT
  Age: 67 Year
  Sex: Male
  Weight: 93 kg

DRUGS (3)
  1. ISOSORBIDE MONONITRATE [Suspect]
     Indication: CORONARY ARTERY OCCLUSION
     Dosage: 30 MG,QD,ORAL
     Route: 048
     Dates: end: 20081001
  2. LEVOTHYROXINE SODIUM [Concomitant]
  3. LIPITOR [Concomitant]

REACTIONS (4)
  - DIZZINESS [None]
  - HEADACHE [None]
  - NAUSEA [None]
  - PRODUCT QUALITY ISSUE [None]
